FAERS Safety Report 7168184-2 (Version None)
Quarter: 2010Q4

REPORT INFORMATION
  Report Type: 
  Country: None (occurrence: None)
  Receive Date: 20101216
  Receipt Date: 20101208
  Transmission Date: 20110411
  Serious: Yes (Other)
  Sender: FDA-Public Use
  Company Number: MY-PFIZER INC-2010167513

PATIENT
  Age: 14 Year
  Sex: Male

DRUGS (3)
  1. DILANTIN [Suspect]
     Indication: GRAND MAL CONVULSION
     Dosage: 500 MG, UNK
     Route: 042
     Dates: start: 20100227, end: 20100227
  2. METOCLOPRAMIDE [Concomitant]
  3. RANITIDINE [Concomitant]

REACTIONS (1)
  - ATRIOVENTRICULAR BLOCK COMPLETE [None]
